FAERS Safety Report 8058043-5 (Version None)
Quarter: 2012Q1

REPORT INFORMATION
  Report Type: 
  Country: None (occurrence: None)
  Receive Date: 20120117
  Receipt Date: 20120117
  Transmission Date: 20120608
  Serious: Yes (Other)
  Sender: FDA-Public Use
  Company Number: None

PATIENT
  Sex: Male
  Weight: 76.2043 kg

DRUGS (2)
  1. LEVOCETIRIZINE DIHYCHLORIDE [Suspect]
     Indication: MULTIPLE ALLERGIES
     Dosage: 5 MG  BID PO
     Route: 048
     Dates: start: 20110410
  2. LEVOCETIRIZINE DIHYCHLORIDE [Suspect]
     Indication: MULTIPLE ALLERGIES
     Dosage: 5 MG  BID PO
     Route: 048
     Dates: start: 20101227

REACTIONS (5)
  - DYSPNOEA [None]
  - SINUS HEADACHE [None]
  - PRODUCT SUBSTITUTION ISSUE [None]
  - BALANCE DISORDER [None]
  - DRUG EFFECT DECREASED [None]
